FAERS Safety Report 13585256 (Version 1)
Quarter: 2017Q2

REPORT INFORMATION
  Report Type: Spontaneous
  Country: US (occurrence: US)
  Receive Date: 20170526
  Receipt Date: 20170526
  Transmission Date: 20170830
  Serious: No
  Sender: FDA-Public Use
  Company Number: US-MALLINCKRODT-T201602729

PATIENT
  Age: 55 Year
  Sex: Female
  Weight: 56 kg

DRUGS (3)
  1. HYDROCODONE/ACETAMINOPHEN [Suspect]
     Active Substance: ACETAMINOPHEN\HYDROCODONE
     Indication: ARTHRITIS
     Dosage: 10/325 MG, ONE TABLET EVERY 6 HRS AS NEEDED (PRN)
     Route: 048
     Dates: start: 20160509
  2. HYDROCODONE/ACETAMINOPHEN [Suspect]
     Active Substance: ACETAMINOPHEN\HYDROCODONE
     Indication: BACK PAIN
     Dosage: 5/325 MG (FREQUENCY NOT PROVIDED)
     Route: 048
     Dates: end: 20160426
  3. HYDROCODONE/ACETAMINOPHEN [Suspect]
     Active Substance: ACETAMINOPHEN\HYDROCODONE
     Indication: ARTHRALGIA
     Dosage: 7.5/325 MG, ONE TABLET EVERY 6-8 HRS AS NEEDED (PRN)
     Route: 048
     Dates: start: 20160426, end: 20160508

REACTIONS (3)
  - Intentional product use issue [Not Recovered/Not Resolved]
  - Drug ineffective [Not Recovered/Not Resolved]
  - Drug effect decreased [Not Recovered/Not Resolved]

NARRATIVE: CASE EVENT DATE: 201604
